FAERS Safety Report 22115869 (Version 1)
Quarter: 2023Q1

REPORT INFORMATION
  Report Type: Spontaneous
  Country: NL (occurrence: NL)
  Receive Date: 20230320
  Receipt Date: 20230320
  Transmission Date: 20230418
  Serious: Yes (Hospitalization)
  Sender: FDA-Public Use
  Company Number: None

PATIENT
  Sex: Female
  Weight: 55.2 kg

DRUGS (10)
  1. HYDROCHLOROTHIAZIDE [Suspect]
     Active Substance: HYDROCHLOROTHIAZIDE
     Indication: Hypertension
     Dosage: 12.5 MILLIGRAM DAILY; 1DD1, BRAND NAME NOT SPECIFIED
     Route: 065
     Dates: start: 20061214, end: 20230224
  2. CARBOMER [Concomitant]
     Active Substance: CARBOMER
     Indication: Product used for unknown indication
     Dosage: 3 MG/G (MILLIGRAM PER GRAM),  (CARBOMETER 974P) / DRY EYE GEL EYE GEL TUBE 10G
  3. METOPROLOL SUCCINATE [Concomitant]
     Active Substance: METOPROLOL SUCCINATE
     Indication: Product used for unknown indication
     Dosage: 100 MG (MILLIGRAM), METOPROLOL TABLET MGA 100MG (SUCCINATE) / BRAND NAME NOT SPECIFIED
  4. LISINOPRIL [Concomitant]
     Active Substance: LISINOPRIL
     Indication: Product used for unknown indication
     Dosage: 10 MG (MILLIGRAM), BRAND NAME NOT SPECIFIED
  5. OXAZEPAM [Concomitant]
     Active Substance: OXAZEPAM
     Indication: Product used for unknown indication
     Dosage: 10 MG (MILLIGRAM),  BRAND NAME NOT SPECIFIED
  6. LEVOTHYROXINE [Concomitant]
     Active Substance: LEVOTHYROXINE
     Indication: Product used for unknown indication
     Dosage: 25 UG (MICROGRAM),
  7. EZETIMIBE [Concomitant]
     Active Substance: EZETIMIBE
     Indication: Product used for unknown indication
     Dosage: 10 MG (MILLIGRAM), BRAND NAME NOT SPECIFIED,
  8. PANTOPRAZOLE SODIUM [Concomitant]
     Active Substance: PANTOPRAZOLE SODIUM
     Indication: Product used for unknown indication
     Dosage: 40 MG (MILLIGRAM), PANTOPRAZOLE TABLET MSR 40MG
  9. ATORVASTATIN [Concomitant]
     Active Substance: ATORVASTATIN
     Indication: Product used for unknown indication
     Dosage: 40 MG (MILLIGRAM),  BRAND NAME NOT SPECIFIED
  10. ASPIRIN [Concomitant]
     Active Substance: ASPIRIN
     Indication: Product used for unknown indication
     Dosage: 80 MG (MILLIGRAM), BRAND NAME NOT SPECIFIED

REACTIONS (1)
  - Hyponatraemia [Recovering/Resolving]
